FAERS Safety Report 9130223 (Version 1)
Quarter: 2013Q1

REPORT INFORMATION
  Report Type: Spontaneous
  Country: GB (occurrence: GB)
  Receive Date: 20130228
  Receipt Date: 20130228
  Transmission Date: 20140127
  Serious: Yes (Other)
  Sender: FDA-Public Use
  Company Number: PHFR2004GB06987

PATIENT
  Sex: Male

DRUGS (4)
  1. CLOZARIL [Suspect]
     Indication: SCHIZOPHRENIA
     Dosage: 225 MG MANE/300 MG NOCTE
     Dates: start: 19960529
  2. CLOZARIL [Suspect]
     Dosage: 25 MG
     Route: 048
     Dates: start: 20010701
  3. SULPIRIDA [Concomitant]
     Dosage: 300 MG, BID
  4. PIRENZEPINE [Concomitant]
     Indication: SALIVARY HYPERSECRETION
     Dosage: 50 MG, DAILY

REACTIONS (2)
  - Grand mal convulsion [Recovered/Resolved]
  - Thrombocytopenia [Unknown]
